FAERS Safety Report 13339384 (Version 1)
Quarter: 2017Q1

REPORT INFORMATION
  Report Type: Spontaneous
  Country: US (occurrence: US)
  Receive Date: 20170315
  Receipt Date: 20170315
  Transmission Date: 20170428
  Serious: Yes (Other)
  Sender: FDA-Public Use
  Company Number: US-PFIZER INC-2017104718

PATIENT
  Sex: Male

DRUGS (1)
  1. XELJANZ [Suspect]
     Active Substance: TOFACITINIB CITRATE
     Dosage: 5 MG, UNK

REACTIONS (18)
  - Dry eye [Unknown]
  - Fatigue [Unknown]
  - Headache [Unknown]
  - Lymphadenopathy [Unknown]
  - Depression [Unknown]
  - Eye pain [Unknown]
  - Weight increased [Unknown]
  - Hypoaesthesia [Unknown]
  - Muscular weakness [Unknown]
  - Dry mouth [Unknown]
  - Blindness [Unknown]
  - Arthralgia [Unknown]
  - Insomnia [Unknown]
  - Dizziness [Unknown]
  - Paraesthesia [Unknown]
  - Dyspnoea [Unknown]
  - Synovitis [Unknown]
  - Anxiety [Unknown]
